FAERS Safety Report 22033786 (Version 1)
Quarter: 2023Q1

REPORT INFORMATION
  Report Type: Spontaneous
  Country: US (occurrence: US)
  Receive Date: 20230224
  Receipt Date: 20230224
  Transmission Date: 20230417
  Serious: No
  Sender: FDA-Public Use
  Company Number: US-TAKEDA-2023TUS019650

PATIENT
  Sex: Female
  Weight: 81.646 kg

DRUGS (5)
  1. VYVANSE [Suspect]
     Active Substance: LISDEXAMFETAMINE DIMESYLATE
     Indication: Attention deficit hyperactivity disorder
     Dosage: 20 MILLIGRAM
     Route: 065
     Dates: start: 202106
  2. VYVANSE [Suspect]
     Active Substance: LISDEXAMFETAMINE DIMESYLATE
     Dosage: 50 MILLIGRAM
     Route: 065
  3. VYVANSE [Suspect]
     Active Substance: LISDEXAMFETAMINE DIMESYLATE
     Dosage: 60 MILLIGRAM
     Route: 065
     Dates: start: 202106
  4. LATUDA [Concomitant]
     Active Substance: LURASIDONE HYDROCHLORIDE
     Route: 065
  5. SEROQUEL [Concomitant]
     Active Substance: QUETIAPINE FUMARATE

REACTIONS (5)
  - Disturbance in attention [Unknown]
  - Hunger [Unknown]
  - Therapeutic product effect decreased [Unknown]
  - Drug ineffective [Not Recovered/Not Resolved]
  - Product quality issue [Unknown]
